FAERS Safety Report 9420331 (Version 1)
Quarter: 2013Q3

REPORT INFORMATION
  Report Type: Spontaneous
  Country: US (occurrence: US)
  Receive Date: 20130725
  Receipt Date: 20130725
  Transmission Date: 20140515
  Serious: No
  Sender: FDA-Public Use
  Company Number: US-ABBOTT-13P-163-1047127-00

PATIENT
  Sex: Female

DRUGS (9)
  1. SYNTHROID [Suspect]
     Indication: AUTOIMMUNE THYROIDITIS
     Dates: start: 1983
  2. ZOMIG [Concomitant]
     Indication: MIGRAINE
  3. CYMBALTA [Concomitant]
     Indication: NEUROPATHY PERIPHERAL
  4. DEPLIN [Concomitant]
     Indication: IRON DEFICIENCY
  5. LOTENSIN [Concomitant]
     Indication: HYPERTENSION
  6. VITAMIN D [Concomitant]
     Indication: VITAMIN SUPPLEMENTATION
  7. SUPER B COMPLEX [Concomitant]
     Indication: VITAMIN SUPPLEMENTATION
  8. VITAMIN C [Concomitant]
     Indication: VITAMIN SUPPLEMENTATION
  9. PROCARDIA XL [Concomitant]
     Indication: HYPERTENSION

REACTIONS (12)
  - Ill-defined disorder [Unknown]
  - Back injury [Unknown]
  - Blood thyroid stimulating hormone [Not Recovered/Not Resolved]
  - Systemic lupus erythematosus [Not Recovered/Not Resolved]
  - Fall [Not Recovered/Not Resolved]
  - Fall [Not Recovered/Not Resolved]
  - Back pain [Not Recovered/Not Resolved]
  - Intervertebral disc protrusion [Not Recovered/Not Resolved]
  - Dehydration [Recovered/Resolved]
  - Intestinal obstruction [Recovered/Resolved]
  - Aphagia [Recovered/Resolved]
  - Back pain [Not Recovered/Not Resolved]
